FAERS Safety Report 8050396-7 (Version None)
Quarter: 2012Q1

REPORT INFORMATION
  Report Type: 
  Country: None (occurrence: None)
  Receive Date: 20120117
  Receipt Date: 20120103
  Transmission Date: 20120608
  Serious: Yes (Death)
  Sender: FDA-Public Use
  Company Number: TR-ACTELION-A-CH2012-59126

PATIENT
  Sex: Female

DRUGS (2)
  1. TRACLEER [Suspect]
     Indication: PULMONARY ARTERIAL HYPERTENSION
     Dosage: 15.625 MG, UNK
     Route: 048
     Dates: start: 20110930, end: 20111204
  2. SILDENAFIL [Concomitant]

REACTIONS (2)
  - ATRIAL SEPTAL DEFECT REPAIR [None]
  - PULMONARY HYPERTENSIVE CRISIS [None]
